FAERS Safety Report 10684491 (Version 1)
Quarter: 2014Q4

REPORT INFORMATION
  Report Type: Spontaneous
  Country: KR (occurrence: KR)
  Receive Date: 20141231
  Receipt Date: 20141231
  Transmission Date: 20150529
  Serious: Yes (Other)
  Sender: FDA-Public Use
  Company Number: PHHY2014KR169152

PATIENT
  Age: 57 Year
  Sex: Female

DRUGS (1)
  1. ZOLEDRONATE [Suspect]
     Active Substance: ZOLEDRONIC ACID
     Indication: PRODUCT USED FOR UNKNOWN INDICATION
     Route: 042

REACTIONS (2)
  - Exposed bone in jaw [Recovered/Resolved]
  - Osteonecrosis of jaw [Recovered/Resolved]
